FAERS Safety Report 15976730 (Version 1)
Quarter: 2019Q1

REPORT INFORMATION
  Report Type: Spontaneous
  Country: US (occurrence: US)
  Receive Date: 20190218
  Receipt Date: 20190218
  Transmission Date: 20190418
  Serious: Yes (Other)
  Sender: FDA-Public Use
  Company Number: US-RADIUS HEALTH, INC.-2019US000530

PATIENT
  Sex: Female

DRUGS (1)
  1. TYMLOS [Suspect]
     Active Substance: ABALOPARATIDE
     Indication: OSTEOPOROSIS POSTMENOPAUSAL
     Dosage: 80 MCG, QD
     Route: 058
     Dates: end: 20190207

REACTIONS (6)
  - Gastrointestinal sounds abnormal [Unknown]
  - Swelling [Unknown]
  - Abdominal pain upper [Unknown]
  - Pain [Unknown]
  - Crohn^s disease [Unknown]
  - Vitamin D increased [Unknown]
